FAERS Safety Report 15813192 (Version 1)
Quarter: 2018Q4

REPORT INFORMATION
  Report Type: Spontaneous
  Country: US (occurrence: US)
  Receive Date: 20181214
  Receipt Date: 20181214
  Transmission Date: 20190205
  Serious: No
  Sender: FDA-Public Use
  Company Number: None

PATIENT
  Age: 23 Year

DRUGS (1)
  1. BOTOX [Suspect]
     Active Substance: ONABOTULINUMTOXINA
     Indication: MIGRAINE
     Dosage: 155 UNITS :EVERY 3 MONTHS INTRAMUSCULARLY?
     Route: 030
     Dates: start: 20160910

REACTIONS (3)
  - Dry eye [None]
  - Ophthalmoplegia [None]
  - Vision blurred [None]

NARRATIVE: CASE EVENT DATE: 20180915
